FAERS Safety Report 4400847-1 (Version None)
Quarter: 2004Q3

REPORT INFORMATION
  Report Type: 
  Country: None (occurrence: None)
  Receive Date: 20040907
  Receipt Date: 20030702
  Transmission Date: 20050211
  Serious: No
  Sender: FDA-Public Use
  Company Number: US-BRISTOL-MYERS SQUIBB COMPANY-12317020

PATIENT
  Age: 77 Year
  Sex: Female
  Weight: 73 kg

DRUGS (8)
  1. COUMADIN [Suspect]
     Indication: ATRIAL FIBRILLATION
     Dosage: DOSAGE: 5MG ONE DAY A WEEK AND 2.5MG 6 DAYS A WEEK
     Route: 048
     Dates: start: 20021201
  2. SYNTHROID [Concomitant]
  3. ATENOLOL [Concomitant]
  4. LASIX [Concomitant]
  5. CARDIZEM [Concomitant]
  6. DIPYRIDAMOLE [Concomitant]
  7. LESCOL [Concomitant]
  8. METAMUCIL-2 [Concomitant]

REACTIONS (2)
  - ALANINE AMINOTRANSFERASE INCREASED [None]
  - ASPARTATE AMINOTRANSFERASE INCREASED [None]
